FAERS Safety Report 5782823-X (Version None)
Quarter: 2008Q2

REPORT INFORMATION
  Report Type: 
  Country: None (occurrence: None)
  Receive Date: 20080619
  Receipt Date: 20080619
  Transmission Date: 20081010
  Serious: Yes (Other)
  Sender: FDA-Public Use
  Company Number: None

PATIENT
  Age: 1 Year
  Sex: Female
  Weight: 8.28 kg

DRUGS (1)
  1. CATAPRES-TTS-1 [Suspect]
     Indication: WITHDRAWAL SYNDROME
     Dosage: WEEKLY TRANSDERMAL
     Route: 062
     Dates: start: 20080608, end: 20080616

REACTIONS (5)
  - ABDOMINAL DISTENSION [None]
  - MEDICATION ERROR [None]
  - RESPIRATORY DISORDER [None]
  - SEPSIS [None]
  - SOMNOLENCE [None]
